FAERS Safety Report 4716628-5 (Version None)
Quarter: 2005Q3

REPORT INFORMATION
  Report Type: 
  Country: None (occurrence: None)
  Receive Date: 20050714
  Receipt Date: 20050620
  Transmission Date: 20060218
  Serious: Yes (Other)
  Sender: FDA-Public Use
  Company Number: 062-05

PATIENT
  Age: 64 Year
  Sex: Female
  Weight: 63.5036 kg

DRUGS (6)
  1. CHOLESTYRAMINE REGULAR, (ORANGE FLAVOR) [Suspect]
     Indication: BLOOD CHOLESTEROL INCREASED
     Dosage: 4 GRAMS TWICE DAILY PO
     Route: 048
     Dates: start: 20050201, end: 20050616
  2. PREVACID [Concomitant]
  3. ASPERTEST [Concomitant]
  4. SYNTHROID [Concomitant]
  5. DICLOFENAC SODIUM [Concomitant]
  6. SPIRIVA [Concomitant]

REACTIONS (1)
  - THROAT IRRITATION [None]
